FAERS Safety Report 24837379 (Version 1)
Quarter: 2025Q1

REPORT INFORMATION
  Report Type: Report from Study
  Country: IT (occurrence: IT)
  Receive Date: 20250113
  Receipt Date: 20250113
  Transmission Date: 20250409
  Serious: Yes (Other)
  Sender: TEVA
  Company Number: IT-EMA-DD-20210305-banavalli_m-221524

PATIENT
  Age: 73 Year
  Sex: Female
  Weight: 70 kg

DRUGS (9)
  1. PACLITAXEL [Suspect]
     Active Substance: PACLITAXEL
     Indication: Breast cancer
     Dosage: DOSAGE TEXT: MOST RECENT DOSE OF PACLITAXEL WAS RECEIVED ON 06/MAR/2019.?ROUTE OF ADMINISTRATION ...
     Route: 042
     Dates: start: 20181112
  2. PERTUZUMAB [Suspect]
     Active Substance: PERTUZUMAB
     Indication: Breast cancer
     Dosage: DOSAGE TEXT: MOST RECENT DOSE OF PERTUZUMAB WAS RECEIVED ON 27/MAR/2020.?ROUTE OF ADMINISTRATION ...
     Route: 042
     Dates: start: 20181112
  3. FULVESTRANT [Suspect]
     Active Substance: FULVESTRANT
     Indication: Breast cancer
     Dosage: DOSAGE TEXT: ROUTE OF ADMINISTRATION : INTRAMUSCULAR . 500MG
     Route: 030
     Dates: start: 20200608
  4. TRASTUZUMAB [Suspect]
     Active Substance: TRASTUZUMAB
     Indication: Breast cancer
     Dosage: DOSAGE TEXT: MOST RECENT DOSE OF TRASTUZUMAB WAS RECEIVED ON 21/JAN/2019.?ROUTE OF ADMINISTRATION...
     Route: 041
     Dates: start: 20181112
  5. PALBOCICLIB [Suspect]
     Active Substance: PALBOCICLIB
     Indication: Breast cancer
     Route: 048
     Dates: start: 20200608
  6. EXEMESTANE [Suspect]
     Active Substance: EXEMESTANE
     Indication: Breast cancer
     Dosage: DOSAGE TEXT: MOST RECENT DOSE OF ANTI-AROMATASES WAS RECEIVED ON 07/JUN/2020.?ROUTE OF ADMINISTRA...
     Route: 048
     Dates: start: 20190320
  7. OLMESARTAN MEDOXOMIL [Concomitant]
     Active Substance: OLMESARTAN MEDOXOMIL
     Route: 065
     Dates: start: 20191113
  8. NEBIVOLOL [Concomitant]
     Active Substance: NEBIVOLOL
     Route: 065
  9. CHOLECALCIFEROL [Concomitant]
     Active Substance: CHOLECALCIFEROL
     Route: 065
     Dates: start: 20190529

REACTIONS (1)
  - Neutropenia [Recovered/Resolved]

NARRATIVE: CASE EVENT DATE: 20200622
